FAERS Safety Report 19097608 (Version 2)
Quarter: 2021Q2

REPORT INFORMATION
  Report Type: Report from Study
  Country: US (occurrence: US)
  Receive Date: 20210406
  Receipt Date: 20210414
  Transmission Date: 20210717
  Serious: Yes (Other)
  Sender: FDA-Public Use
  Company Number: US-GLAXOSMITHKLINE-US2021AMR073738

PATIENT

DRUGS (1)
  1. BELANTAMAB MAFODOTIN. [Suspect]
     Active Substance: BELANTAMAB MAFODOTIN
     Indication: PRODUCT USED FOR UNKNOWN INDICATION
     Dosage: UNK, 2.5 MG/KG Q3 WEEKS

REACTIONS (4)
  - Retinal disorder [Unknown]
  - Eye haemorrhage [Unknown]
  - Therapeutic product effect incomplete [Unknown]
  - Platelet count decreased [Unknown]
